FAERS Safety Report 18012818 (Version 3)
Quarter: 2020Q3

REPORT INFORMATION
  Report Type: Spontaneous
  Country: US (occurrence: US)
  Receive Date: 20200713
  Receipt Date: 20200804
  Transmission Date: 20201103
  Serious: Yes (Other)
  Sender: FDA-Public Use
  Company Number: US-GLAXOSMITHKLINE-US2020124840

PATIENT
  Sex: Female

DRUGS (1)
  1. NUCALA [Suspect]
     Active Substance: MEPOLIZUMAB
     Indication: ASTHMA
     Dosage: UNK
     Route: 058

REACTIONS (6)
  - Exposure via skin contact [Unknown]
  - Product dose omission issue [Unknown]
  - Pneumonia [Recovered/Resolved with Sequelae]
  - Product storage error [Unknown]
  - Accidental exposure to product [Unknown]
  - Product complaint [Unknown]
